FAERS Safety Report 21555639 (Version 1)
Quarter: 2022Q4

REPORT INFORMATION
  Report Type: Spontaneous
  Country: DK (occurrence: DK)
  Receive Date: 20221104
  Receipt Date: 20221104
  Transmission Date: 20230112
  Serious: Yes (Hospitalization)
  Sender: FDA-Public Use
  Company Number: None

PATIENT
  Age: 23 Year
  Sex: Male
  Weight: 82 kg

DRUGS (2)
  1. QUETIAPINE [Suspect]
     Active Substance: QUETIAPINE
     Indication: Sleep deficit
     Dosage: DOSAGE: 25 MG ADMINISTERED AT UNKNOWN INTERVAL. STRENGTH: 25 MG
     Dates: start: 20211014
  2. SERTRALINE HYDROCHLORIDE [Suspect]
     Active Substance: SERTRALINE HYDROCHLORIDE
     Indication: Anxiety
     Dosage: DOSAGE: INCREASED FROM 25 MG TO 50 MG DAILY ON 13DEC2021, STRENGTH: 50 MG , UNIT DOSE : 50 MG   , FR
     Dates: start: 20211208, end: 20211214

REACTIONS (4)
  - Suicide attempt [Recovered/Resolved]
  - Suicidal ideation [Not Recovered/Not Resolved]
  - Agitation [Recovered/Resolved]
  - Restlessness [Recovered/Resolved]

NARRATIVE: CASE EVENT DATE: 20211213
